FAERS Safety Report 11349271 (Version 1)
Quarter: 2015Q3

REPORT INFORMATION
  Report Type: Spontaneous
  Country: IN (occurrence: None)
  Receive Date: 20150805
  Receipt Date: 20150805
  Transmission Date: 20151125
  Serious: Yes (Congenital Anomaly)
  Sender: FDA-Public Use
  Company Number: 2015JUB00236

PATIENT

DRUGS (3)
  1. CARBAMAZEPINE (CARBAMAZEPINE) UNKNOWN [Suspect]
     Active Substance: CARBAMAZEPINE
     Indication: EPILEPSY
  2. PHENYTOIN (PHENYTOIN) [Suspect]
     Active Substance: PHENYTOIN
     Indication: EPILEPSY
  3. FOLIC ACID. [Concomitant]
     Active Substance: FOLIC ACID

REACTIONS (3)
  - VIIth nerve paralysis [None]
  - Maternal drugs affecting foetus [None]
  - Anomaly of external ear congenital [None]
